FAERS Safety Report 8044251 (Version 7)
Quarter: 2015Q1

REPORT INFORMATION
  Report Type: Spontaneous
  Country: US (occurrence: US)
  Receive Date: 20110719
  Receipt Date: 20150218
  Transmission Date: 20150721
  Serious: Yes (Life-Threatening, Congenital Anomaly, Other)
  Sender: FDA-Public Use
  Company Number: US-PFIZER INC-2011158495

PATIENT
  Sex: Female
  Weight: 4 kg

DRUGS (14)
  1. EFFEXOR XR [Suspect]
     Active Substance: VENLAFAXINE HYDROCHLORIDE
     Indication: ANXIETY
     Dosage: 1 DF, DAILY
     Route: 064
     Dates: start: 200604, end: 200606
  2. IRON SUPPLEMENT [Concomitant]
     Active Substance: IRON
     Dosage: UNK
     Route: 064
     Dates: start: 2006, end: 2007
  3. PRENATAL VITAMINS [Concomitant]
     Active Substance: VITAMINS
     Dosage: UNK
     Route: 064
     Dates: start: 2006, end: 2007
  4. OMEGA-3 ACIDS [Concomitant]
     Active Substance: OMEGA-3 FATTY ACIDS
     Dosage: UNK
     Route: 064
     Dates: start: 2006, end: 2007
  5. PRENATAL [Concomitant]
     Active Substance: VITAMINS
     Dosage: UNK
     Route: 064
     Dates: start: 20061124
  6. FOLIC ACID. [Concomitant]
     Active Substance: FOLIC ACID
     Dosage: UNK
     Route: 064
  7. TERBUTALINE [Concomitant]
     Active Substance: TERBUTALINE
     Dosage: 0.25 MG, DAILY
     Route: 064
     Dates: start: 20070225
  8. VENLAFAXINE HCL [Suspect]
     Active Substance: VENLAFAXINE HYDROCHLORIDE
     Indication: DEPRESSION
  9. ASPARTO GLY 5 [Concomitant]
     Dosage: UNK
     Route: 064
     Dates: start: 2006, end: 2007
  10. EFFEXOR XR [Suspect]
     Active Substance: VENLAFAXINE HYDROCHLORIDE
     Indication: DEPRESSION
  11. PROCARDIA [Concomitant]
     Active Substance: NIFEDIPINE
     Indication: PROPHYLAXIS
     Dosage: 10 MG, DAILY
     Route: 064
     Dates: start: 20070226
  12. CHROMAGEN [Concomitant]
     Dosage: UNK
     Route: 064
     Dates: start: 20070329
  13. VENLAFAXINE HCL [Suspect]
     Active Substance: VENLAFAXINE HYDROCHLORIDE
     Indication: ANXIETY
     Dosage: 1 DF, DAILY
     Route: 064
     Dates: start: 200604, end: 200606
  14. NIASPAN [Concomitant]
     Active Substance: NIACIN
     Dosage: UNK
     Route: 064

REACTIONS (22)
  - Pulmonary artery stenosis [Unknown]
  - Atrioventricular septal defect [Unknown]
  - Atrial septal defect [Unknown]
  - Heterotaxia [Unknown]
  - Tricuspid valve incompetence [Recovered/Resolved]
  - Ventricular septal defect [Unknown]
  - Hypoplastic right heart syndrome [Unknown]
  - Cardiac aneurysm [Unknown]
  - Double outlet right ventricle [Unknown]
  - Hypoplastic left heart syndrome [Unknown]
  - Patent ductus arteriosus [Unknown]
  - Vascular malformation [Unknown]
  - Takayasu^s arteritis [Unknown]
  - Mitral valve incompetence [Recovered/Resolved]
  - Supraventricular tachycardia [Unknown]
  - Cardiomegaly [Unknown]
  - Pulmonary artery atresia [Unknown]
  - Aortic valve incompetence [Unknown]
  - Pulmonary valve stenosis congenital [Unknown]
  - Congenital anomaly [Unknown]
  - Maternal exposure timing unspecified [Recovered/Resolved]
  - Transposition of the great vessels [Unknown]

NARRATIVE: CASE EVENT DATE: 20070412
